FAERS Safety Report 22379729 (Version 1)
Quarter: 2023Q2

REPORT INFORMATION
  Report Type: Spontaneous
  Country: US (occurrence: US)
  Receive Date: 20230529
  Receipt Date: 20230529
  Transmission Date: 20230721
  Serious: Yes (Hospitalization)
  Sender: FDA-Public Use
  Company Number: US-NOVOPROD-1069510

PATIENT
  Age: 53 Year
  Sex: Male

DRUGS (2)
  1. SEMAGLUTIDE [Suspect]
     Active Substance: SEMAGLUTIDE
     Indication: Obesity
  2. SEMAGLUTIDE [Suspect]
     Active Substance: SEMAGLUTIDE
     Indication: Type 2 diabetes mellitus
     Dosage: 2.66MG

REACTIONS (6)
  - Accidental overdose [Unknown]
  - Vomiting [Unknown]
  - Abdominal pain upper [Unknown]
  - Hiccups [Unknown]
  - Food intolerance [Unknown]
  - Asthenia [Unknown]
